FAERS Safety Report 18529443 (Version 1)
Quarter: 2020Q4

REPORT INFORMATION
  Report Type: Spontaneous
  Country: US (occurrence: US)
  Receive Date: 20201120
  Receipt Date: 20201120
  Transmission Date: 20210114
  Serious: Yes (Death)
  Sender: FDA-Public Use
  Company Number: US-PFIZER INC-2020259834

PATIENT
  Age: 81 Year
  Sex: Male
  Weight: 81.65 kg

DRUGS (1)
  1. DAURISMO [Suspect]
     Active Substance: GLASDEGIB
     Indication: MYELODYSPLASTIC SYNDROME
     Dosage: 50 MG, DAILY
     Route: 048

REACTIONS (2)
  - Neoplasm progression [Fatal]
  - Off label use [Unknown]
